FAERS Safety Report 9637204 (Version 1)
Quarter: 2013Q4

REPORT INFORMATION
  Report Type: Report from Study
  Country: US (occurrence: US)
  Receive Date: 20131022
  Receipt Date: 20131022
  Transmission Date: 20140711
  Serious: No
  Sender: FDA-Public Use
  Company Number: US-JNJFOC-20131012564

PATIENT
  Sex: 0

DRUGS (1)
  1. STELARA [Suspect]
     Indication: PUSTULAR PSORIASIS
     Route: 058

REACTIONS (2)
  - Pustular psoriasis [Unknown]
  - Off label use [Unknown]
